FAERS Safety Report 6151368-X (Version None)
Quarter: 2009Q2

REPORT INFORMATION
  Report Type: 
  Country: None (occurrence: None)
  Receive Date: 20090410
  Receipt Date: 20090401
  Transmission Date: 20091009
  Serious: No
  Sender: FDA-Public Use
  Company Number: US-JNJFOC-20090400711

PATIENT
  Sex: Female
  Weight: 67.59 kg

DRUGS (3)
  1. FENTANYL TRANSDERMAL SYSTEM [Suspect]
     Indication: INTERVERTEBRAL DISC DEGENERATION
     Route: 062
  2. UNSPECIFIED HORMONES [Concomitant]
     Route: 065
  3. UNSPECIFIED MUSCLE RELAXER [Concomitant]
     Route: 048

REACTIONS (1)
  - WRONG TECHNIQUE IN DRUG USAGE PROCESS [None]
